FAERS Safety Report 13405500 (Version 1)
Quarter: 2017Q2

REPORT INFORMATION
  Report Type: Spontaneous
  Country: IT (occurrence: IT)
  Receive Date: 20170405
  Receipt Date: 20170405
  Transmission Date: 20170830
  Serious: Yes (Other)
  Sender: FDA-Public Use
  Company Number: IT-TEVA-755158ACC

PATIENT
  Age: 74 Year
  Sex: Female

DRUGS (1)
  1. CARBOPLATINO TEVA - 1 FLACONE 600 MG/60 ML - TEVA PHARMA B.V. [Suspect]
     Active Substance: CARBOPLATIN
     Indication: OVARIAN CANCER
     Route: 042
     Dates: start: 20161011, end: 20170124

REACTIONS (2)
  - Rash [None]
  - Chest discomfort [Unknown]

NARRATIVE: CASE EVENT DATE: 20170124
